FAERS Safety Report 9471911 (Version 2)
Quarter: 2013Q4

REPORT INFORMATION
  Report Type: Report from Study
  Country: US (occurrence: US)
  Receive Date: 20130823
  Receipt Date: 20131206
  Transmission Date: 20140711
  Serious: Yes (Other)
  Sender: FDA-Public Use
  Company Number: US-ROCHE-1262375

PATIENT
  Sex: Male

DRUGS (1)
  1. ERIVEDGE [Suspect]
     Indication: BASAL CELL CARCINOMA
     Route: 048
     Dates: end: 20131119

REACTIONS (4)
  - Cholecystectomy [Unknown]
  - Pharyngeal oedema [Unknown]
  - Cholecystitis [Unknown]
  - Drug ineffective [Unknown]
